FAERS Safety Report 16975022 (Version 9)
Quarter: 2020Q1

REPORT INFORMATION
  Report Type: Spontaneous
  Country: US (occurrence: US)
  Receive Date: 20191030
  Receipt Date: 20200320
  Transmission Date: 20200409
  Serious: Yes (Hospitalization, Other)
  Sender: FDA-Public Use
  Company Number: US-ACTELION-A-US2019-197526

PATIENT
  Sex: Male
  Weight: 79.37 kg

DRUGS (11)
  1. WARFARIN [Concomitant]
     Active Substance: WARFARIN
  2. UPTRAVI [Suspect]
     Active Substance: SELEXIPAG
     Dosage: 600 MCG, BID
     Route: 048
  3. UPTRAVI [Suspect]
     Active Substance: SELEXIPAG
     Indication: PULMONARY ARTERIAL HYPERTENSION
     Dosage: 600 MCG, BID
     Route: 048
  4. UPTRAVI [Suspect]
     Active Substance: SELEXIPAG
     Dosage: 400 MCG, BID
     Route: 048
  5. UPTRAVI [Suspect]
     Active Substance: SELEXIPAG
     Dosage: 200 MCG, BID
     Route: 048
  6. UPTRAVI [Suspect]
     Active Substance: SELEXIPAG
     Dosage: 400 MCG QAM, 600 MCG, QPM
     Route: 048
  7. UPTRAVI [Suspect]
     Active Substance: SELEXIPAG
     Dosage: 1000 MCG, BID
     Route: 048
  8. ADCIRCA [Concomitant]
     Active Substance: TADALAFIL
  9. UPTRAVI [Suspect]
     Active Substance: SELEXIPAG
     Dosage: 200 MCG
     Route: 048
  10. AMBRISENTAN [Concomitant]
     Active Substance: AMBRISENTAN
  11. LETAIRIS [Concomitant]
     Active Substance: AMBRISENTAN

REACTIONS (21)
  - Hospitalisation [Unknown]
  - Pain [Unknown]
  - Chest pain [Unknown]
  - Disturbance in attention [Unknown]
  - Diarrhoea [Unknown]
  - Headache [Not Recovered/Not Resolved]
  - Cervical vertebral fracture [Unknown]
  - Head injury [Unknown]
  - Malaise [Unknown]
  - Fall [Unknown]
  - Loss of consciousness [Unknown]
  - Dizziness [Unknown]
  - Acidosis [Unknown]
  - Feeling abnormal [Unknown]
  - Nausea [Unknown]
  - Fatigue [Unknown]
  - Cardiac disorder [Unknown]
  - White blood cell count abnormal [Unknown]
  - Hypertension [Unknown]
  - Vomiting [Unknown]
  - Localised oedema [Unknown]
